FAERS Safety Report 8632816 (Version 3)
Quarter: 2012Q4

REPORT INFORMATION
  Report Type: 
  Country: GB (occurrence: GB)
  Receive Date: 20120625
  Receipt Date: 20121119
  Transmission Date: 20130627
  Serious: Yes (Life-Threatening)
  Sender: FDA-Public Use
  Company Number: GB-ELI_LILLY_AND_COMPANY-GB201203001922

PATIENT
  Age: 60 Year
  Sex: Female
  Weight: 65 kg

DRUGS (2)
  1. FORSTEO [Suspect]
     Dosage: UNK
     Dates: start: 201106, end: 201204
  2. ANASTROZOLE [Concomitant]

REACTIONS (5)
  - Metastases to bone [Not Recovered/Not Resolved]
  - Fatigue [Unknown]
  - Asthenia [Unknown]
  - Nausea [Unknown]
  - Liver function test abnormal [Not Recovered/Not Resolved]
